FAERS Safety Report 9818285 (Version 1)
Quarter: 2013Q4

REPORT INFORMATION
  Report Type: Spontaneous
  Country: US (occurrence: None)
  Receive Date: 20131223
  Receipt Date: 20131223
  Transmission Date: 20140711
  Serious: Yes (Other)
  Sender: FDA-Public Use
  Company Number: 222241

PATIENT
  Age: 46 Year
  Sex: Female

DRUGS (3)
  1. PICATO GEL [Suspect]
     Indication: ACTINIC KERATOSIS
     Route: 061
     Dates: start: 20130530
  2. MULTIVITAMIN (MULTIVITAMIN) [Concomitant]
  3. VITAMIN C [Concomitant]

REACTIONS (1)
  - Chemical eye injury [None]
